FAERS Safety Report 7265079-0 (Version None)
Quarter: 2011Q1

REPORT INFORMATION
  Report Type: 
  Country: None (occurrence: None)
  Receive Date: 20110131
  Receipt Date: 20110125
  Transmission Date: 20110831
  Serious: Yes (Death, Life-Threatening, Hospitalization)
  Sender: FDA-Public Use
  Company Number: FR-JNJFOC-20110100188

PATIENT
  Sex: Male

DRUGS (27)
  1. OXYCODONE HCL [Concomitant]
     Route: 065
  2. LIDOCAINE HYDROCHLORIDE IN PLASTIC CONTAINER [Concomitant]
     Route: 003
  3. EMEND [Suspect]
     Indication: PRODUCT USED FOR UNKNOWN INDICATION
     Route: 048
  4. NEURONTIN [Suspect]
     Indication: PRODUCT USED FOR UNKNOWN INDICATION
     Route: 048
  5. HALDOL [Suspect]
     Indication: NAUSEA
     Route: 048
     Dates: start: 20091112, end: 20091113
  6. ETOPOSIDE [Suspect]
     Indication: EXTRAGONADAL PRIMARY GERM CELL TUMOUR MIXED STAGE I
     Route: 042
  7. BIONOLYTE [Concomitant]
     Route: 065
  8. LAROXYL [Suspect]
     Indication: PRODUCT USED FOR UNKNOWN INDICATION
     Route: 048
  9. LAROXYL [Suspect]
     Route: 048
  10. POLARAMINE [Suspect]
     Indication: PRODUCT USED FOR UNKNOWN INDICATION
     Route: 042
  11. CARBOPLATIN [Suspect]
     Indication: EXTRAGONADAL PRIMARY GERM CELL TUMOUR MIXED STAGE I
     Route: 042
  12. LEXOMIL [Concomitant]
     Route: 065
  13. ZOPHREN [Concomitant]
     Route: 065
  14. NEUPOGEN [Concomitant]
     Route: 065
  15. TOPALGIC [Suspect]
     Indication: PAIN
     Route: 048
  16. CONTRAMAL LP [Suspect]
     Indication: PAIN
     Route: 048
  17. CIPROFLOXACIN HCL [Suspect]
     Indication: FEBRILE BONE MARROW APLASIA
     Route: 048
  18. ORAMORPH SR [Concomitant]
     Route: 065
  19. OXYCONTIN [Concomitant]
     Route: 065
  20. NEUPOGEN [Concomitant]
     Route: 065
  21. TRIFLUCAN [Suspect]
     Indication: FEBRILE BONE MARROW APLASIA
     Route: 048
  22. AUGMENTIN '125' [Suspect]
     Indication: FEBRILE BONE MARROW APLASIA
     Route: 048
     Dates: start: 20091117, end: 20091121
  23. EMEND [Suspect]
     Route: 048
  24. HYDROCORTISONE [Concomitant]
     Route: 065
  25. FLAGYL [Concomitant]
     Indication: FEBRILE BONE MARROW APLASIA
     Route: 065
  26. PRIMPERAN TAB [Concomitant]
     Route: 065
  27. EFFERALGAN [Concomitant]
     Route: 065

REACTIONS (4)
  - ILEITIS [None]
  - FEBRILE BONE MARROW APLASIA [None]
  - INTESTINAL OBSTRUCTION [None]
  - OFF LABEL USE [None]
